FAERS Safety Report 21363652 (Version 1)
Quarter: 2022Q3

REPORT INFORMATION
  Report Type: Spontaneous
  Country: JP (occurrence: JP)
  Receive Date: 20220922
  Receipt Date: 20220922
  Transmission Date: 20221026
  Serious: Yes (Death, Hospitalization, Other)
  Sender: FDA-Public Use
  Company Number: JP-UCBJ-CD202209419UCBPHAPROD

PATIENT

DRUGS (1)
  1. VIMPAT [Suspect]
     Active Substance: LACOSAMIDE
     Indication: Product used for unknown indication
     Dosage: UNK
     Route: 048

REACTIONS (22)
  - Epilepsy [Fatal]
  - Marasmus [Fatal]
  - Hospitalisation [Unknown]
  - Depression suicidal [Unknown]
  - Depressive symptom [Unknown]
  - Irritability [Unknown]
  - Mood altered [Unknown]
  - Somnolence [Unknown]
  - Memory impairment [Unknown]
  - Dizziness [Unknown]
  - Headache [Unknown]
  - Aggression [Unknown]
  - Tremor [Unknown]
  - Dysarthria [Unknown]
  - Abnormal behaviour [Unknown]
  - Nausea [Unknown]
  - Dissociative identity disorder [Unknown]
  - Alopecia [Unknown]
  - Pruritus [Unknown]
  - Chest pain [Unknown]
  - Treatment noncompliance [Unknown]
  - Therapeutic response decreased [Unknown]
